FAERS Safety Report 16541400 (Version 1)
Quarter: 2019Q3

REPORT INFORMATION
  Report Type: Spontaneous
  Country: FR (occurrence: FR)
  Receive Date: 20190708
  Receipt Date: 20190708
  Transmission Date: 20191004
  Serious: Yes (Hospitalization)
  Sender: FDA-Public Use
  Company Number: FR-ABBVIE-19K-056-2845106-00

PATIENT
  Age: 60 Year
  Sex: Female
  Weight: 59.6 kg

DRUGS (11)
  1. NEFOPAM MEDISOL [Suspect]
     Active Substance: NEFOPAM HYDROCHLORIDE
     Indication: PAIN
     Route: 042
     Dates: start: 20190528, end: 20190529
  2. CEFOXITINE PANPHARMA [Suspect]
     Active Substance: CEFOXITIN SODIUM
     Indication: INFECTION PROPHYLAXIS
     Route: 042
     Dates: start: 20190528, end: 20190528
  3. MORPHINE RENAUDIN [Suspect]
     Active Substance: MORPHINE
     Indication: PROCEDURAL PAIN
     Route: 042
     Dates: start: 20190529, end: 20190529
  4. SEVORANE [Suspect]
     Active Substance: SEVOFLURANE
     Indication: GENERAL ANAESTHESIA
     Route: 055
     Dates: start: 20190528, end: 20190528
  5. PHLOROGLUCINOL ARROW [Suspect]
     Active Substance: PHLOROGLUCINOL
     Indication: PAIN
     Route: 042
     Dates: start: 20190528, end: 20190528
  6. PROPOFOL MYLAN [Suspect]
     Active Substance: PROPOFOL
     Indication: GENERAL ANAESTHESIA
     Route: 042
     Dates: start: 20190528, end: 20190528
  7. ROCURONIUM B BRAUN [Suspect]
     Active Substance: ROCURONIUM BROMIDE
     Indication: GENERAL ANAESTHESIA
     Route: 042
     Dates: start: 20190528, end: 20190528
  8. SUFENTANIL MYLAN [Suspect]
     Active Substance: SUFENTANIL
     Indication: GENERAL ANAESTHESIA
     Route: 042
     Dates: start: 20190528, end: 20190528
  9. PARACETAMOL B BRAUN [Suspect]
     Active Substance: ACETAMINOPHEN
     Indication: PAIN
     Route: 042
     Dates: start: 20190528, end: 20190604
  10. METRONIDAZOLE B BRAUN [Suspect]
     Active Substance: METRONIDAZOLE
     Indication: INFECTION PROPHYLAXIS
     Route: 042
     Dates: start: 20190528, end: 20190528
  11. TOPALGIC (TRAMADOL) [Suspect]
     Active Substance: TRAMADOL HYDROCHLORIDE
     Indication: PAIN
     Route: 042
     Dates: start: 20190528, end: 20190602

REACTIONS (2)
  - Rash maculo-papular [Recovering/Resolving]
  - Hepatocellular injury [Recovered/Resolved]

NARRATIVE: CASE EVENT DATE: 20190531
